FAERS Safety Report 6897070-8 (Version None)
Quarter: 2010Q3

REPORT INFORMATION
  Report Type: 
  Country: None (occurrence: None)
  Receive Date: 20100802
  Receipt Date: 20070403
  Transmission Date: 20110219
  Serious: No
  Sender: FDA-Public Use
  Company Number: US-PFIZER INC-2007027219

PATIENT
  Sex: Male
  Weight: 61.2 kg

DRUGS (4)
  1. LYRICA [Suspect]
     Indication: DIABETES MELLITUS
     Dates: start: 20070403
  2. LYRICA [Suspect]
     Indication: HYPERTENSION
  3. GLYBURIDE [Concomitant]
     Indication: DIABETES MELLITUS
  4. ANTIHYPERTENSIVES [Concomitant]
     Indication: HYPERTENSION

REACTIONS (2)
  - PARAESTHESIA [None]
  - SOMNOLENCE [None]
